FAERS Safety Report 10788550 (Version 1)
Quarter: 2015Q1

REPORT INFORMATION
  Report Type: Report from Study
  Country: DE (occurrence: DE)
  Receive Date: 20150212
  Receipt Date: 20150212
  Transmission Date: 20150721
  Serious: Yes (Hospitalization, Other)
  Sender: FDA-Public Use
  Company Number: DE-ABBVIE-15K-062-1344256-00

PATIENT
  Sex: Male

DRUGS (2)
  1. METHOTREXATE [Suspect]
     Active Substance: METHOTREXATE
     Indication: PRODUCT USED FOR UNKNOWN INDICATION
     Dosage: 17.5-15 MG
     Route: 065
  2. HUMIRA [Suspect]
     Active Substance: ADALIMUMAB
     Indication: RHEUMATOID ARTHRITIS
     Route: 058
     Dates: start: 201210, end: 201305

REACTIONS (7)
  - Gastrointestinal telangiectasia [Not Recovered/Not Resolved]
  - Metastatic bronchial carcinoma [Not Recovered/Not Resolved]
  - Colon adenoma [Unknown]
  - Gastric ulcer haemorrhage [Not Recovered/Not Resolved]
  - Coronary artery disease [Recovered/Resolved]
  - Metastases to lung [Not Recovered/Not Resolved]
  - Arteriosclerosis coronary artery [Recovered/Resolved]

NARRATIVE: CASE EVENT DATE: 20130627
